FAERS Safety Report 19313451 (Version 1)
Quarter: 2021Q2

REPORT INFORMATION
  Report Type: Spontaneous
  Country: AU (occurrence: AU)
  Receive Date: 20210527
  Receipt Date: 20210527
  Transmission Date: 20210717
  Serious: No
  Sender: FDA-Public Use
  Company Number: None

PATIENT
  Sex: Male
  Weight: 20 kg

DRUGS (2)
  1. MONTELUKAST [Suspect]
     Active Substance: MONTELUKAST SODIUM
     Indication: ASTHMA
     Dosage: ?          QUANTITY:1 TABLET(S);?
     Route: 048
  2. FLIXOTIDE JUNIOR [Concomitant]

REACTIONS (13)
  - Anxiety [None]
  - Sleep disorder [None]
  - Tic [None]
  - Depression [None]
  - Aggression [None]
  - Sinusitis [None]
  - Restlessness [None]
  - Agitation [None]
  - Somnambulism [None]
  - Disorientation [None]
  - Hostility [None]
  - Abnormal dreams [None]
  - Obsessive-compulsive disorder [None]
